FAERS Safety Report 22152312 (Version 1)
Quarter: 2023Q1

REPORT INFORMATION
  Report Type: Spontaneous
  Country: ID (occurrence: None)
  Receive Date: 20230329
  Receipt Date: 20230329
  Transmission Date: 20230417
  Serious: Yes (Hospitalization)
  Sender: FDA-Public Use
  Company Number: ID-ROCHE-3320221

PATIENT

DRUGS (2)
  1. TECENTRIQ [Suspect]
     Active Substance: ATEZOLIZUMAB
     Indication: Human epidermal growth factor receptor negative
     Dosage: PATIENT GOT THE 1ST CYCLE OF TECENTRIQ IN MID OF MAR 2023
     Route: 065
     Dates: start: 202303
  2. TECENTRIQ [Suspect]
     Active Substance: ATEZOLIZUMAB
     Indication: Non-small cell lung cancer

REACTIONS (1)
  - Thrombocytopenia [Unknown]
